FAERS Safety Report 17117221 (Version 1)
Quarter: 2019Q4

REPORT INFORMATION
  Report Type: Spontaneous
  Country: CA (occurrence: CA)
  Receive Date: 20191205
  Receipt Date: 20191205
  Transmission Date: 20200122
  Serious: Yes (Other)
  Sender: FDA-Public Use
  Company Number: CA-PFIZER INC-2019519939

PATIENT
  Sex: Female

DRUGS (17)
  1. HYDROCORTISONE. [Suspect]
     Active Substance: HYDROCORTISONE
     Dosage: UNK
  2. LANSOPRAZOLE. [Suspect]
     Active Substance: LANSOPRAZOLE
     Dosage: 30 MG, UNK
  3. IBUPROFEN. [Concomitant]
     Active Substance: IBUPROFEN
     Dosage: UNK
  4. COSENTYX [Suspect]
     Active Substance: SECUKINUMAB
     Indication: ANKYLOSING SPONDYLITIS
     Dosage: 150 MG, UNK
     Route: 058
  5. CELEBREX [Concomitant]
     Active Substance: CELECOXIB
     Dosage: 200 MG, 1X/DAY
  6. COVERSYL [PERINDOPRIL ARGININE] [Concomitant]
     Active Substance: PERINDOPRIL ARGININE
     Dosage: UNK
  7. HCTZ [Concomitant]
     Active Substance: HYDROCHLOROTHIAZIDE
     Dosage: 25 MG, 2X/DAY
  8. PREDNISONE. [Concomitant]
     Active Substance: PREDNISONE
     Dosage: UNK
  9. NAPROXEN. [Concomitant]
     Active Substance: NAPROXEN
     Dosage: UNK
  10. OXYCODONE HYDROCHLORIDE. [Suspect]
     Active Substance: OXYCODONE HYDROCHLORIDE
     Dosage: 0.5 DF, UNK
  11. HYDROXOCOBALAMIN [Suspect]
     Active Substance: HYDROXOCOBALAMIN
     Dosage: UNK
  12. DICLOFENAC SODIUM. [Suspect]
     Active Substance: DICLOFENAC SODIUM
     Dosage: UNK
  13. ARTHROTEC [Concomitant]
     Active Substance: DICLOFENAC SODIUM\MISOPROSTOL
     Dosage: UNK
  14. HUMIRA [Concomitant]
     Active Substance: ADALIMUMAB
     Dosage: UNK
  15. MOBICOX [Concomitant]
     Active Substance: MELOXICAM
     Dosage: UNK
  16. AMLODIPINE BESILATE [Suspect]
     Active Substance: AMLODIPINE BESYLATE
     Dosage: 10 MG, UNK
  17. RALIVIA [Concomitant]
     Active Substance: TRAMADOL HYDROCHLORIDE
     Dosage: 10 MG, 1X/DAY

REACTIONS (9)
  - Nasopharyngitis [Recovering/Resolving]
  - Swelling [Recovering/Resolving]
  - Arthralgia [Recovering/Resolving]
  - Humerus fracture [Recovering/Resolving]
  - Back pain [Recovering/Resolving]
  - Musculoskeletal pain [Recovering/Resolving]
  - Joint swelling [Recovering/Resolving]
  - Musculoskeletal stiffness [Recovering/Resolving]
  - Neck pain [Recovering/Resolving]
